FAERS Safety Report 5255226-4 (Version None)
Quarter: 2007Q1

REPORT INFORMATION
  Report Type: 
  Country: None (occurrence: None)
  Receive Date: 20070228
  Receipt Date: 20070212
  Transmission Date: 20070707
  Serious: Yes (Other)
  Sender: FDA-Public Use
  Company Number: DSA_29204_2007

PATIENT
  Age: 5 Year
  Sex: Male

DRUGS (1)
  1. LORAZEPAM [Suspect]
     Dosage: 1 MG ONCE PO
     Route: 048
     Dates: start: 20061125, end: 20061125

REACTIONS (7)
  - ACCIDENTAL OVERDOSE [None]
  - ANOREXIA [None]
  - BALANCE DISORDER [None]
  - DEPRESSED LEVEL OF CONSCIOUSNESS [None]
  - DIPLOPIA [None]
  - HALLUCINATION [None]
  - VOMITING [None]
